FAERS Safety Report 25669973 (Version 1)
Quarter: 2025Q3

REPORT INFORMATION
  Report Type: Spontaneous
  Country: US (occurrence: US)
  Receive Date: 20250812
  Receipt Date: 20250812
  Transmission Date: 20251020
  Serious: Yes (Other)
  Sender: MYLAN
  Company Number: US-MYLANLABS-2025M1066873

PATIENT
  Age: 62 Year
  Sex: Female

DRUGS (12)
  1. PREDNISONE [Suspect]
     Active Substance: PREDNISONE
     Indication: Pulmonary sarcoidosis
  2. PREDNISONE [Suspect]
     Active Substance: PREDNISONE
     Indication: Cutaneous sarcoidosis
     Route: 065
  3. PREDNISONE [Suspect]
     Active Substance: PREDNISONE
     Indication: Neurosarcoidosis
     Route: 065
  4. PREDNISONE [Suspect]
     Active Substance: PREDNISONE
  5. AZATHIOPRINE [Suspect]
     Active Substance: AZATHIOPRINE
     Indication: Pulmonary sarcoidosis
  6. AZATHIOPRINE [Suspect]
     Active Substance: AZATHIOPRINE
     Indication: Cutaneous sarcoidosis
     Route: 065
  7. AZATHIOPRINE [Suspect]
     Active Substance: AZATHIOPRINE
     Indication: Neurosarcoidosis
     Route: 065
  8. AZATHIOPRINE [Suspect]
     Active Substance: AZATHIOPRINE
  9. ADALIMUMAB [Suspect]
     Active Substance: ADALIMUMAB
     Indication: Pulmonary sarcoidosis
  10. ADALIMUMAB [Suspect]
     Active Substance: ADALIMUMAB
     Indication: Cutaneous sarcoidosis
     Route: 065
  11. ADALIMUMAB [Suspect]
     Active Substance: ADALIMUMAB
     Indication: Neurosarcoidosis
     Route: 065
  12. ADALIMUMAB [Suspect]
     Active Substance: ADALIMUMAB

REACTIONS (1)
  - Drug ineffective [Unknown]
